FAERS Safety Report 5977785-6 (Version None)
Quarter: 2008Q4

REPORT INFORMATION
  Report Type: 
  Country: None (occurrence: None)
  Receive Date: 20081202
  Receipt Date: 20081202
  Transmission Date: 20090506
  Serious: Yes (Other)
  Sender: FDA-Public Use
  Company Number: None

PATIENT
  Age: 41 Year
  Sex: Female
  Weight: 68.0396 kg

DRUGS (2)
  1. SINGULAIR [Suspect]
     Indication: ASTHMA
     Dosage: 10MG TAB 1X DAY PO
     Route: 048
     Dates: start: 20060801, end: 20080901
  2. SINGULAIR [Suspect]
     Indication: MULTIPLE ALLERGIES
     Dosage: 10MG TAB 1X DAY PO
     Route: 048
     Dates: start: 20060801, end: 20080901

REACTIONS (2)
  - EAR INFECTION [None]
  - EAR PAIN [None]
